FAERS Safety Report 16049251 (Version 4)
Quarter: 2019Q4

REPORT INFORMATION
  Report Type: Spontaneous
  Country: US (occurrence: US)
  Receive Date: 20190307
  Receipt Date: 20191001
  Transmission Date: 20200122
  Serious: Yes (Other)
  Sender: FDA-Public Use
  Company Number: US-ASTRAZENECA-2018SF33937

PATIENT
  Age: 49 Year
  Sex: Female
  Weight: 136.1 kg

DRUGS (46)
  1. PROTONIX [Suspect]
     Active Substance: PANTOPRAZOLE SODIUM
     Dosage: PANTOPRAZOLE-TAKE 1 TABLET ORALLY TWICE DAILY
     Route: 048
     Dates: start: 20130624
  2. LANSOPRAZOLE. [Suspect]
     Active Substance: LANSOPRAZOLE
     Indication: GASTROOESOPHAGEAL REFLUX DISEASE
     Route: 065
     Dates: start: 20101001
  3. ATENOLOL. [Concomitant]
     Active Substance: ATENOLOL
  4. DIAZEPAM. [Concomitant]
     Active Substance: DIAZEPAM
     Dates: start: 20091124
  5. DARVOCET [Concomitant]
     Active Substance: ACETAMINOPHEN\PROPOXYPHENE HYDROCHLORIDE
  6. LOVASTATIN. [Concomitant]
     Active Substance: LOVASTATIN
  7. NOVOLIN [Concomitant]
     Active Substance: INSULIN HUMAN
     Dates: start: 20091106
  8. PRILOSEC [Suspect]
     Active Substance: OMEPRAZOLE MAGNESIUM
     Indication: GASTROOESOPHAGEAL REFLUX DISEASE
     Route: 048
     Dates: start: 20160121
  9. PRILOSEC [Suspect]
     Active Substance: OMEPRAZOLE MAGNESIUM
     Indication: GASTROOESOPHAGEAL REFLUX DISEASE
     Route: 048
     Dates: start: 20060101, end: 20110101
  10. LISINOPRIL. [Concomitant]
     Active Substance: LISINOPRIL
  11. FAMOTIDINE. [Concomitant]
     Active Substance: FAMOTIDINE
  12. SPIRONOLACTONE. [Concomitant]
     Active Substance: SPIRONOLACTONE
  13. ASPIRIN. [Concomitant]
     Active Substance: ASPIRIN
  14. MEPERIDINE [Concomitant]
     Active Substance: MEPERIDINE
  15. CLARITHROMYCIN. [Concomitant]
     Active Substance: CLARITHROMYCIN
  16. LINEZOLID. [Concomitant]
     Active Substance: LINEZOLID
  17. LIORESAL [Concomitant]
     Active Substance: BACLOFEN
  18. OCUFLOX [Concomitant]
     Active Substance: OFLOXACIN
  19. VESICARE [Concomitant]
     Active Substance: SOLIFENACIN SUCCINATE
  20. PRILOSEC [Suspect]
     Active Substance: OMEPRAZOLE MAGNESIUM
     Indication: GASTROOESOPHAGEAL REFLUX DISEASE
     Route: 048
     Dates: start: 20060101, end: 20111231
  21. PRILOSEC [Suspect]
     Active Substance: OMEPRAZOLE MAGNESIUM
     Indication: GASTROOESOPHAGEAL REFLUX DISEASE
     Dosage: OMEPRAZOLE
     Route: 048
     Dates: start: 20110101
  22. NOVOLIN N [Concomitant]
     Active Substance: INSULIN HUMAN
  23. PRAVASTATIN. [Concomitant]
     Active Substance: PRAVASTATIN
  24. HYDROCHLOROTHIAZIDE. [Concomitant]
     Active Substance: HYDROCHLOROTHIAZIDE
  25. FLUTICASONE. [Concomitant]
     Active Substance: FLUTICASONE
  26. CETIRIZINE [Concomitant]
     Active Substance: CETIRIZINE HYDROCHLORIDE
  27. MIRENA [Concomitant]
     Active Substance: LEVONORGESTREL
  28. FLUTICASONE. [Concomitant]
     Active Substance: FLUTICASONE
     Dates: start: 20091106
  29. PRILOSEC [Suspect]
     Active Substance: OMEPRAZOLE MAGNESIUM
     Indication: GASTROOESOPHAGEAL REFLUX DISEASE
     Dosage: OMEPRAZOLE
     Route: 048
     Dates: start: 20101208
  30. GLYBURIDE. [Concomitant]
     Active Substance: GLYBURIDE
  31. NITROFURANTOIN. [Concomitant]
     Active Substance: NITROFURANTOIN
  32. NEXIUM [Concomitant]
     Active Substance: ESOMEPRAZOLE MAGNESIUM
     Route: 048
     Dates: start: 20090717
  33. HYDROCODONE-ACETAMINOPHEN [Concomitant]
     Active Substance: ACETAMINOPHEN\HYDROCODONE
  34. ZITHROMAX [Concomitant]
     Active Substance: AZITHROMYCIN DIHYDRATE
  35. LISINOPRIL. [Concomitant]
     Active Substance: LISINOPRIL
     Dates: start: 20091106
  36. PROTONIX [Suspect]
     Active Substance: PANTOPRAZOLE SODIUM
     Route: 065
     Dates: start: 20060101, end: 20111231
  37. LANSOPRAZOLE. [Suspect]
     Active Substance: LANSOPRAZOLE
     Indication: GASTROOESOPHAGEAL REFLUX DISEASE
     Route: 065
     Dates: start: 2017
  38. METOCLOPRAMIDE. [Concomitant]
     Active Substance: METOCLOPRAMIDE
  39. PREDNISONE. [Concomitant]
     Active Substance: PREDNISONE
  40. BENZONATATE. [Concomitant]
     Active Substance: BENZONATATE
  41. AMITRIPTYLINE [Concomitant]
     Active Substance: AMITRIPTYLINE
  42. LOVASTATIN. [Concomitant]
     Active Substance: LOVASTATIN
     Dates: start: 20091106
  43. INSULIN [Concomitant]
     Active Substance: INSULIN NOS
     Dates: start: 20091120
  44. K-TAB [Concomitant]
     Active Substance: POTASSIUM CHLORIDE
  45. ACIPHEX [Concomitant]
     Active Substance: RABEPRAZOLE SODIUM
  46. CLINDAMYCIN HYDROCHLORIDE. [Concomitant]
     Active Substance: CLINDAMYCIN HYDROCHLORIDE

REACTIONS (3)
  - Chronic kidney disease [Not Recovered/Not Resolved]
  - Acute kidney injury [Not Recovered/Not Resolved]
  - Renal injury [Unknown]

NARRATIVE: CASE EVENT DATE: 2009
